FAERS Safety Report 4373437-7 (Version None)
Quarter: 2004Q2

REPORT INFORMATION
  Report Type: 
  Country: None (occurrence: None)
  Receive Date: 20040603
  Receipt Date: 20040524
  Transmission Date: 20050107
  Serious: Yes (Other)
  Sender: FDA-Public Use
  Company Number: 2004214963JP

PATIENT
  Age: 34 Year
  Sex: Male

DRUGS (1)
  1. NORPACE [Suspect]
     Indication: ATRIAL FIBRILLATION
     Dosage: 50 MG, IV
     Route: 042
     Dates: start: 20021201

REACTIONS (4)
  - BRUGADA SYNDROME [None]
  - ELECTROCARDIOGRAM QRS COMPLEX PROLONGED [None]
  - ELECTROCARDIOGRAM ST-T CHANGE [None]
  - VENTRICULAR FIBRILLATION [None]
